FAERS Safety Report 23577863 (Version 1)
Quarter: 2024Q1

REPORT INFORMATION
  Report Type: Spontaneous
  Country: IL (occurrence: IL)
  Receive Date: 20240228
  Receipt Date: 20240228
  Transmission Date: 20240410
  Serious: Yes (Hospitalization, Other)
  Sender: FDA-Public Use
  Company Number: IL-CELLTRION INC.-2024IL003967

PATIENT

DRUGS (5)
  1. INFLIXIMAB [Suspect]
     Active Substance: INFLIXIMAB
     Indication: Behcet^s syndrome
     Dosage: MORE THAN 7 I.V INFUSIONS.
     Route: 042
  2. INFLIXIMAB [Suspect]
     Active Substance: INFLIXIMAB
     Indication: Mouth ulceration
     Dosage: 300 MG
     Route: 042
     Dates: start: 20230524
  3. INFLIXIMAB [Suspect]
     Active Substance: INFLIXIMAB
     Indication: Abdominal pain upper
     Dosage: 300 MG
     Route: 042
     Dates: start: 20230920
  4. INFLIXIMAB [Suspect]
     Active Substance: INFLIXIMAB
     Indication: Behcet^s syndrome
     Dosage: 300 MG
     Route: 042
     Dates: start: 20240110
  5. IMURAN [Concomitant]
     Active Substance: AZATHIOPRINE
     Indication: Behcet^s syndrome
     Dosage: 200 MG, DAILY

REACTIONS (4)
  - Behcet^s syndrome [Unknown]
  - Hypersensitivity [Unknown]
  - Dyspnoea [Unknown]
  - Intentional product use issue [Unknown]

NARRATIVE: CASE EVENT DATE: 20240110
